FAERS Safety Report 4767108-2 (Version None)
Quarter: 2005Q3

REPORT INFORMATION
  Report Type: 
  Country: None (occurrence: None)
  Receive Date: 20050908
  Receipt Date: 20050826
  Transmission Date: 20060218
  Serious: Yes (Other)
  Sender: FDA-Public Use
  Company Number: 2005121005

PATIENT
  Age: 68 Year
  Sex: Male
  Weight: 106 kg

DRUGS (5)
  1. ALDACTONE [Suspect]
     Indication: STAPHYLOCOCCAL INFECTION
     Dosage: 1200 MG (2 IN 1 D), ORAL
     Route: 048
     Dates: end: 20050624
  2. TAREG (VALSARTAN) [Suspect]
     Indication: HYPERTENSION
     Dosage: UNKNOWN
     Route: 065
     Dates: end: 20050624
  3. VANCOMYCIN HCL [Suspect]
     Indication: STAPHYLOCOCCAL INFECTION
     Dosage: UNKNOWN
     Route: 065
     Dates: start: 20050622, end: 20050624
  4. ENOXAPARIN SODIUM [Concomitant]
  5. SOTALOL HCL [Concomitant]

REACTIONS (8)
  - ANAEMIA [None]
  - ARTHRODESIS [None]
  - CONDITION AGGRAVATED [None]
  - POST PROCEDURAL DIARRHOEA [None]
  - POSTOPERATIVE INFECTION [None]
  - RENAL FAILURE ACUTE [None]
  - SERUM FERRITIN DECREASED [None]
  - STAPHYLOCOCCAL INFECTION [None]
